FAERS Safety Report 8067580-9 (Version None)
Quarter: 2012Q1

REPORT INFORMATION
  Report Type: 
  Country: None (occurrence: None)
  Receive Date: 20120124
  Receipt Date: 20120110
  Transmission Date: 20120608
  Serious: Yes (Death, Hospitalization)
  Sender: FDA-Public Use
  Company Number: AU-CELGENEUS-008-50794-11112191

PATIENT
  Sex: Male
  Weight: 83.7 kg

DRUGS (12)
  1. PRAZOSIN HCL [Concomitant]
     Indication: HYPERTENSION
     Dosage: 10 MILLIGRAM
     Route: 048
     Dates: end: 20111210
  2. TRANEXAMIC ACID [Concomitant]
     Dosage: 1000 MILLIGRAM
     Route: 048
     Dates: end: 20111212
  3. TRAMADOL HCL [Concomitant]
     Indication: PAIN
     Dosage: 50 MILLIGRAM
     Route: 048
  4. POSACONAZOLE [Concomitant]
     Indication: INFECTION
     Dosage: 800 MILLIGRAM
     Route: 048
     Dates: end: 20111212
  5. ATENOLOL [Concomitant]
     Indication: HYPERTENSION
     Dosage: 50 MILLIGRAM
     Route: 048
     Dates: end: 20111210
  6. VIDAZA [Suspect]
     Dosage: 30 MILLIGRAM
     Route: 065
     Dates: start: 20111028, end: 20111111
  7. PANOBINOSTAT [Suspect]
     Dosage: 130.5 MILLIGRAM
     Route: 065
     Dates: start: 20111024, end: 20111028
  8. CIPROFLOXACIN [Concomitant]
     Indication: INFECTION
     Dosage: 1000 MILLIGRAM
     Route: 048
  9. AMOXICILLIN AND CLAVULANATE POTASSIUM [Concomitant]
     Indication: INFECTION
     Dosage: 2000 MILLIGRAM
     Route: 048
  10. PREDNISOLONE [Concomitant]
     Indication: INFLAMMATION
     Dosage: 5 MILLIGRAM
     Route: 048
  11. DEFERASIROX [Concomitant]
     Indication: IRON OVERLOAD
     Dosage: 250 MILLIGRAM
     Route: 048
     Dates: end: 20111124
  12. ACETAMINOPHEN [Concomitant]
     Indication: PAIN
     Dosage: 1995 MILLIGRAM
     Route: 048
     Dates: end: 20111211

REACTIONS (1)
  - FEBRILE NEUTROPENIA [None]
